FAERS Safety Report 25238696 (Version 1)
Quarter: 2025Q2

REPORT INFORMATION
  Report Type: Report from Study
  Country: IN (occurrence: IN)
  Receive Date: 20250425
  Receipt Date: 20250425
  Transmission Date: 20250717
  Serious: Yes (Other)
  Sender: ROCHE
  Company Number: IN-002147023-NVSC2025IN066878

PATIENT
  Sex: Female
  Weight: 61 kg

DRUGS (1)
  1. RANIBIZUMAB [Suspect]
     Active Substance: RANIBIZUMAB
     Indication: Diabetic retinopathy
     Dosage: 0.5 MG, QMO
     Route: 050
     Dates: start: 20240716

REACTIONS (3)
  - Vitreous haemorrhage [Unknown]
  - Vision blurred [Unknown]
  - Visual impairment [Unknown]
